FAERS Safety Report 14420675 (Version 1)
Quarter: 2018Q1

REPORT INFORMATION
  Report Type: Spontaneous
  Country: US (occurrence: US)
  Receive Date: 20180122
  Receipt Date: 20180122
  Transmission Date: 20180509
  Serious: No
  Sender: FDA-Public Use
  Company Number: US-ROCHE-1937434

PATIENT
  Age: 85 Year
  Sex: Male

DRUGS (3)
  1. GAZYVA [Suspect]
     Active Substance: OBINUTUZUMAB
     Indication: CHRONIC LYMPHOCYTIC LEUKAEMIA
     Dosage: NO
     Route: 041
     Dates: start: 201611
  2. RITUXAN [Suspect]
     Active Substance: RITUXIMAB
     Indication: CHRONIC LYMPHOCYTIC LEUKAEMIA
     Dosage: NO
     Route: 065
     Dates: end: 2012
  3. GAZYVA [Suspect]
     Active Substance: OBINUTUZUMAB
     Dosage: YES
     Route: 042
     Dates: start: 201611

REACTIONS (4)
  - Drug intolerance [Recovered/Resolved]
  - Tremor [Recovered/Resolved]
  - Chills [Recovered/Resolved]
  - Treatment failure [Unknown]

NARRATIVE: CASE EVENT DATE: 201611
